FAERS Safety Report 13730584 (Version 2)
Quarter: 2017Q3

REPORT INFORMATION
  Report Type: Spontaneous
  Country: US (occurrence: US)
  Receive Date: 20170707
  Receipt Date: 20170922
  Transmission Date: 20171127
  Serious: Yes (Hospitalization)
  Sender: FDA-Public Use
  Company Number: US-JNJFOC-20170607447

PATIENT
  Age: 72 Year
  Sex: Male

DRUGS (4)
  1. XARELTO [Suspect]
     Active Substance: RIVAROXABAN
     Indication: ATRIAL FIBRILLATION
     Dosage: 10MG THEN INCREASED TO 20MG??(1 WEEK AFTER STARTING)
     Route: 048
     Dates: start: 20150602, end: 2015
  2. XARELTO [Suspect]
     Active Substance: RIVAROXABAN
     Indication: CEREBROVASCULAR ACCIDENT PROPHYLAXIS
     Dosage: 10MG THEN INCREASED TO 20MG??(1 WEEK AFTER STARTING)
     Route: 048
     Dates: start: 20150602, end: 2015
  3. XARELTO [Suspect]
     Active Substance: RIVAROXABAN
     Indication: ATRIAL FIBRILLATION
     Dosage: 10MG THEN INCREASED TO 20MG??(1 WEEK AFTER STARTING)
     Route: 048
     Dates: start: 201507, end: 20150709
  4. XARELTO [Suspect]
     Active Substance: RIVAROXABAN
     Indication: CEREBROVASCULAR ACCIDENT PROPHYLAXIS
     Dosage: 10MG THEN INCREASED TO 20MG??(1 WEEK AFTER STARTING)
     Route: 048
     Dates: start: 201507, end: 20150709

REACTIONS (1)
  - Gastrointestinal haemorrhage [Recovering/Resolving]

NARRATIVE: CASE EVENT DATE: 20150708
